FAERS Safety Report 8591867-4 (Version None)
Quarter: 2012Q3

REPORT INFORMATION
  Report Type: 
  Country: None (occurrence: None)
  Receive Date: 20120814
  Receipt Date: 20120810
  Transmission Date: 20120928
  Serious: Yes (Death, Other)
  Sender: FDA-Public Use
  Company Number: PHHY2012NL069830

PATIENT
  Sex: Male

DRUGS (3)
  1. ZOMETA [Suspect]
     Dosage: 4 MG/ 100 ML ONCE PER 84 DAYS
     Dates: start: 20120313
  2. ZOMETA [Suspect]
     Indication: PROSTATE CANCER METASTATIC
     Dosage: 4 MG/ 100 ML ONCE PER 84 DAYS
     Dates: start: 20090407
  3. ZOMETA [Suspect]
     Dosage: 4 MG/ 100 ML ONCE PER 84 DAYS
     Dates: start: 20120611

REACTIONS (5)
  - NEOPLASM MALIGNANT [None]
  - INTESTINAL PERFORATION [None]
  - INTESTINAL OBSTRUCTION [None]
  - ABDOMINAL PAIN [None]
  - FEELING ABNORMAL [None]
